FAERS Safety Report 17316075 (Version 1)
Quarter: 2020Q1

REPORT INFORMATION
  Report Type: Spontaneous
  Country: US (occurrence: US)
  Receive Date: 20200124
  Receipt Date: 20200124
  Transmission Date: 20200409
  Serious: Yes (Other)
  Sender: FDA-Public Use
  Company Number: US-ASTRAZENECA-2020SE08811

PATIENT
  Sex: Female

DRUGS (5)
  1. NEXIUM 24HR CLEARMINIS [Suspect]
     Active Substance: ESOMEPRAZOLE MAGNESIUM
     Route: 048
  2. NEXIUM [Suspect]
     Active Substance: ESOMEPRAZOLE MAGNESIUM
     Route: 048
  3. NEXIUM 24HR [Suspect]
     Active Substance: ESOMEPRAZOLE MAGNESIUM
     Route: 048
  4. NEXIUM GENERIC [Suspect]
     Active Substance: ESOMEPRAZOLE
     Route: 048
  5. PRILOSEC [Suspect]
     Active Substance: OMEPRAZOLE MAGNESIUM
     Route: 048

REACTIONS (16)
  - Sepsis [Unknown]
  - Ventricular tachycardia [Unknown]
  - Drug ineffective [Unknown]
  - Cardiac failure congestive [Unknown]
  - Musculoskeletal pain [Unknown]
  - Heart rate increased [Unknown]
  - Stress [Unknown]
  - Nausea [Unknown]
  - Cardiac disorder [Unknown]
  - Asthma [Unknown]
  - Diarrhoea [Unknown]
  - Feeling abnormal [Unknown]
  - Clostridium difficile infection [Unknown]
  - Vomiting [Unknown]
  - Eructation [Unknown]
  - Dysgeusia [Unknown]
